FAERS Safety Report 20192655 (Version 1)
Quarter: 2021Q4

REPORT INFORMATION
  Report Type: Spontaneous
  Country: US (occurrence: US)
  Receive Date: 20211216
  Receipt Date: 20211216
  Transmission Date: 20220303
  Serious: Yes (Death, Life-Threatening, Other)
  Sender: FDA-Public Use
  Company Number: US-SUN PHARMACEUTICAL INDUSTRIES LTD-2021R1-320615

PATIENT
  Age: 49 Year
  Sex: Female

DRUGS (5)
  1. SUNITINIB [Suspect]
     Active Substance: SUNITINIB
     Indication: Thyroid cancer
     Dosage: 37.5 MILLIGRAM, DAILY
     Route: 065
  2. FLUOROURACIL [Concomitant]
     Active Substance: FLUOROURACIL
     Indication: Thyroid cancer
     Dosage: 400 MILLIGRAM/SQ. METER, EVERY 2 WEEKS
     Route: 042
  3. FLUOROURACIL [Concomitant]
     Active Substance: FLUOROURACIL
     Dosage: 2400 MILLIGRAM/SQ. METER, EVERY 2 WEEKS
     Route: 065
  4. LEUCOVORIN [Concomitant]
     Active Substance: LEUCOVORIN
     Indication: Thyroid cancer
     Dosage: 400 MILLIGRAM/SQ. METER,EVERY 2 WEEKS
     Route: 065
  5. OXALIPLATIN [Concomitant]
     Active Substance: OXALIPLATIN
     Indication: Thyroid cancer
     Dosage: 85 MILLIGRAM/SQ. METER,EVERY 2 WEEKS
     Route: 065

REACTIONS (1)
  - Pseudocirrhosis [Fatal]
